FAERS Safety Report 4294916-7 (Version None)
Quarter: 2004Q1

REPORT INFORMATION
  Report Type: 
  Country: None (occurrence: None)
  Receive Date: 20040216
  Receipt Date: 20030225
  Transmission Date: 20041129
  Serious: No
  Sender: FDA-Public Use
  Company Number: US-GLAXOSMITHKLINE-A0398006A

PATIENT
  Age: 25 Year
  Sex: Female

DRUGS (2)
  1. LAMICTAL [Suspect]
     Dosage: 200MG PER DAY
     Route: 048
     Dates: start: 20021130
  2. UNSPECIFIED MEDICATIONS [Concomitant]
     Indication: ASTHMA

REACTIONS (2)
  - SKIN DEPIGMENTATION [None]
  - SKIN DISCOLOURATION [None]
